FAERS Safety Report 21049377 (Version 1)
Quarter: 2022Q3

REPORT INFORMATION
  Report Type: Spontaneous
  Country: US (occurrence: None)
  Receive Date: 20220706
  Receipt Date: 20220706
  Transmission Date: 20221027
  Serious: Yes (unspecified)
  Sender: FDA-Public Use
  Company Number: None

PATIENT
  Age: 34 Year
  Sex: Female
  Weight: 67.5 kg

DRUGS (1)
  1. VITAMINS [Suspect]
     Active Substance: VITAMINS
     Indication: Vomiting
     Dosage: FREQUENCY : DAILY;?
     Route: 042
     Dates: start: 20220629, end: 20220629

REACTIONS (5)
  - Feeling abnormal [None]
  - Infusion related reaction [None]
  - Oropharyngeal discomfort [None]
  - Cough [None]
  - Dysphonia [None]

NARRATIVE: CASE EVENT DATE: 20220629
